FAERS Safety Report 5432979-3 (Version None)
Quarter: 2007Q3

REPORT INFORMATION
  Report Type: 
  Country: None (occurrence: None)
  Receive Date: 20070831
  Receipt Date: 20070823
  Transmission Date: 20080115
  Serious: Yes (Other)
  Sender: FDA-Public Use
  Company Number: PHBS2007BR14069

PATIENT
  Sex: Female

DRUGS (2)
  1. LITHIUM CARBONATE [Concomitant]
  2. CODATEN [Suspect]
     Indication: PAIN IN EXTREMITY

REACTIONS (2)
  - CONFUSIONAL STATE [None]
  - URINARY INCONTINENCE [None]
